FAERS Safety Report 16871364 (Version 2)
Quarter: 2019Q4

REPORT INFORMATION
  Report Type: Spontaneous
  Country: AU (occurrence: AU)
  Receive Date: 20191001
  Receipt Date: 20191218
  Transmission Date: 20200122
  Serious: Yes (Other)
  Sender: FDA-Public Use
  Company Number: AU-ROCHE-2336546

PATIENT
  Sex: Female
  Weight: 73.5 kg

DRUGS (2)
  1. OCREVUS [Suspect]
     Active Substance: OCRELIZUMAB
     Indication: RELAPSING-REMITTING MULTIPLE SCLEROSIS
     Route: 042
  2. OCREVUS [Suspect]
     Active Substance: OCRELIZUMAB
     Dosage: SAME DOSE ON 14/JAN/2019?MOST RECENT DOSE : JUL/2019
     Route: 042
     Dates: start: 20180628

REACTIONS (2)
  - Maternal exposure during pregnancy [Unknown]
  - Hydronephrosis [Unknown]
